FAERS Safety Report 13510969 (Version 1)
Quarter: 2017Q2

REPORT INFORMATION
  Report Type: Spontaneous
  Country: US (occurrence: US)
  Receive Date: 20170503
  Receipt Date: 20170503
  Transmission Date: 20170830
  Serious: No
  Sender: FDA-Public Use
  Company Number: None

PATIENT
  Age: 89 Year
  Sex: Female

DRUGS (1)
  1. COLESTIPOL [Suspect]
     Active Substance: COLESTIPOL
     Indication: BLOOD CHOLESTEROL ABNORMAL
     Route: 048
     Dates: start: 20170327, end: 20170503

REACTIONS (3)
  - Product physical issue [None]
  - Product substitution issue [None]
  - Product coating issue [None]

NARRATIVE: CASE EVENT DATE: 20170503
